FAERS Safety Report 25913808 (Version 2)
Quarter: 2025Q4

REPORT INFORMATION
  Report Type: Spontaneous
  Country: AU (occurrence: AU)
  Receive Date: 20251013
  Receipt Date: 20251023
  Transmission Date: 20260118
  Serious: Yes (Other)
  Sender: ASCEND THERAPEUTICS US, LLC
  Company Number: AU-Ascend Therapeutics US, LLC-2186446

PATIENT
  Sex: Female

DRUGS (4)
  1. ESTROGEL [Suspect]
     Active Substance: ESTRADIOL
     Indication: Ovarian failure
  2. ESTRADIOL [Suspect]
     Active Substance: ESTRADIOL
  3. ESTRADIOL [Concomitant]
     Active Substance: ESTRADIOL
  4. ESTRADIOL [Suspect]
     Active Substance: ESTRADIOL

REACTIONS (6)
  - Suicidal ideation [Unknown]
  - Drug ineffective [Unknown]
  - Depression [Unknown]
  - Thirst [Unknown]
  - Chest pain [Unknown]
  - Cardiac disorder [Unknown]
